FAERS Safety Report 17247227 (Version 4)
Quarter: 2020Q2

REPORT INFORMATION
  Report Type: Spontaneous
  Country: US (occurrence: US)
  Receive Date: 20200108
  Receipt Date: 20200402
  Transmission Date: 20200713
  Serious: No
  Sender: FDA-Public Use
  Company Number: US-JNJFOC-20200104620

PATIENT
  Age: 42 Year
  Sex: Female
  Weight: 45.4 kg

DRUGS (6)
  1. SIMPONI [Suspect]
     Active Substance: GOLIMUMAB
     Indication: ANKYLOSING SPONDYLITIS
     Route: 058
     Dates: start: 201907
  2. SIMPONI [Suspect]
     Active Substance: GOLIMUMAB
     Route: 058
     Dates: start: 201908
  3. LYRICA [Concomitant]
     Active Substance: PREGABALIN
     Route: 065
  4. PREDNISONE. [Concomitant]
     Active Substance: PREDNISONE
     Route: 065
  5. TRAMADOL. [Concomitant]
     Active Substance: TRAMADOL
     Route: 065
  6. TIZANIDINE. [Concomitant]
     Active Substance: TIZANIDINE
     Route: 065

REACTIONS (3)
  - Device malfunction [Unknown]
  - Product complaint [Unknown]
  - Product dose omission [Unknown]

NARRATIVE: CASE EVENT DATE: 201912
